FAERS Safety Report 16244635 (Version 1)
Quarter: 2019Q2

REPORT INFORMATION
  Report Type: Spontaneous
  Country: US (occurrence: US)
  Receive Date: 20190426
  Receipt Date: 20190426
  Transmission Date: 20190711
  Serious: Yes (Other)
  Sender: FDA-Public Use
  Company Number: US-PFIZER INC-2019173710

PATIENT
  Age: 61 Year
  Sex: Male

DRUGS (15)
  1. ATENOLOL. [Concomitant]
     Active Substance: ATENOLOL
     Dosage: UNK
  2. TERBINAFINE. [Concomitant]
     Active Substance: TERBINAFINE
     Dosage: UNK
  3. CEFPODOXIME [Concomitant]
     Active Substance: CEFPODOXIME
     Dosage: UNK (7-DAY COURSE)
  4. MAGNESIUM SULFATE. [Suspect]
     Active Substance: MAGNESIUM SULFATE
     Indication: ATRIAL FIBRILLATION
     Dosage: 1 G, UNK (OVER 30 MINUTES)
     Route: 042
  5. ATORVASTATIN CALCIUM. [Concomitant]
     Active Substance: ATORVASTATIN CALCIUM
     Dosage: UNK
  6. WARFARIN [Concomitant]
     Active Substance: WARFARIN
     Dosage: UNK
  7. ALLOPURINOL. [Concomitant]
     Active Substance: ALLOPURINOL
     Dosage: UNK
  8. IBUTILIDE FUMARATE. [Suspect]
     Active Substance: IBUTILIDE FUMARATE
     Indication: ATRIAL FIBRILLATION
     Dosage: 10 MG, UNK (SEPARATED BY 30 MINUTES)
     Route: 042
  9. DOXYCYCLINE. [Concomitant]
     Active Substance: DOXYCYCLINE
     Dosage: UNK (7-DAY COURSE)
  10. MAGNESIUM SULFATE. [Suspect]
     Active Substance: MAGNESIUM SULFATE
     Dosage: 4 G, UNK
     Route: 042
  11. LISINOPRIL. [Concomitant]
     Active Substance: LISINOPRIL
     Dosage: UNK
  12. AMLODIPINE BESILATE [Concomitant]
     Active Substance: AMLODIPINE BESYLATE
     Dosage: UNK
  13. HYDROCHLOROTHIAZIDE. [Concomitant]
     Active Substance: HYDROCHLOROTHIAZIDE
     Dosage: UNK
  14. GLIPIZIDE. [Concomitant]
     Active Substance: GLIPIZIDE
     Dosage: UNK
  15. METOPROLOL. [Concomitant]
     Active Substance: METOPROLOL
     Indication: HEART RATE
     Dosage: 5 MG, UNK (3 SERIAL 5-MG BOLUS INJECTIONS OF INTRAVENOUS)
     Route: 040

REACTIONS (3)
  - Incorrect dose administered [Recovering/Resolving]
  - Contraindicated product administered [Recovering/Resolving]
  - Torsade de pointes [Recovering/Resolving]
